FAERS Safety Report 4486329-X (Version None)
Quarter: 2004Q4

REPORT INFORMATION
  Report Type: 
  Country: None (occurrence: None)
  Receive Date: 20041027
  Receipt Date: 20041015
  Transmission Date: 20050328
  Serious: Yes (Hospitalization)
  Sender: FDA-Public Use
  Company Number: DE-JNJFOC-20041004740

PATIENT
  Age: 56 Year
  Sex: Female

DRUGS (5)
  1. REMICADE [Suspect]
     Route: 042
  2. REMICADE [Suspect]
     Route: 042
  3. METHOTREXATE [Concomitant]
     Route: 049
  4. PREDNISOLONE [Concomitant]
     Dosage: DOSE HAS BEEN INCREASED TO UNKNOWN AMOUNT.
     Route: 049
  5. ACEMETACIN [Concomitant]
     Dosage: 90 TO 180 MG AS REQUIRED
     Route: 049

REACTIONS (6)
  - ANGIONEUROTIC OEDEMA [None]
  - CUSHING'S SYNDROME [None]
  - FACE OEDEMA [None]
  - HYPERSENSITIVITY [None]
  - LYMPHADENOPATHY [None]
  - VERTIGO [None]
